FAERS Safety Report 19676209 (Version 1)
Quarter: 2021Q3

REPORT INFORMATION
  Report Type: Report from Study
  Country: GB (occurrence: GB)
  Receive Date: 20210809
  Receipt Date: 20210809
  Transmission Date: 20211014
  Serious: Yes (Other)
  Sender: FDA-Public Use
  Company Number: NVSC2021GB174666

PATIENT
  Age: 48 Year
  Sex: Female

DRUGS (3)
  1. BENEPALI [Suspect]
     Active Substance: ETANERCEPT
     Indication: RHEUMATOID ARTHRITIS
     Dosage: 50 MG, QW
     Route: 058
     Dates: start: 20210521
  2. METHOTREXATE. [Suspect]
     Active Substance: METHOTREXATE
     Dosage: UNKNOWN
     Route: 048
  3. METHOTREXATE. [Suspect]
     Active Substance: METHOTREXATE
     Indication: PRODUCT USED FOR UNKNOWN INDICATION
     Dosage: UNKNOWN
     Route: 058

REACTIONS (11)
  - Immunodeficiency [Unknown]
  - Dizziness [Unknown]
  - Abdominal distension [Unknown]
  - Malaise [Unknown]
  - Illness [Unknown]
  - Rheumatoid arthritis [Unknown]
  - Gastroenteritis viral [Unknown]
  - Poor quality sleep [Unknown]
  - Headache [Unknown]
  - Menopause [Unknown]
  - Gastrointestinal infection [Unknown]
